FAERS Safety Report 22159956 (Version 2)
Quarter: 2023Q2

REPORT INFORMATION
  Report Type: Report from Study
  Country: US (occurrence: US)
  Receive Date: 20230331
  Receipt Date: 20230502
  Transmission Date: 20230722
  Serious: Yes (Other)
  Sender: FDA-Public Use
  Company Number: US-002147023-NVSC2023US069151

PATIENT
  Sex: Male

DRUGS (1)
  1. ENTRESTO [Suspect]
     Active Substance: SACUBITRIL\VALSARTAN
     Indication: Product used for unknown indication
     Dosage: 0.5 DOSAGE FORM, BID 24/26MG (0.5 TABLET)
     Route: 065
     Dates: start: 202303

REACTIONS (6)
  - Choking [Unknown]
  - Cough [Unknown]
  - Throat clearing [Recovering/Resolving]
  - Productive cough [Recovering/Resolving]
  - Wrong technique in product usage process [Unknown]
  - Prescribed underdose [Unknown]
